FAERS Safety Report 10487383 (Version 3)
Quarter: 2014Q4

REPORT INFORMATION
  Report Type: Spontaneous
  Country: DK (occurrence: DK)
  Receive Date: 20141001
  Receipt Date: 20141216
  Transmission Date: 20150528
  Serious: Yes (Hospitalization, Disabling, Other)
  Sender: FDA-Public Use
  Company Number: PHHY2014DK124189

PATIENT
  Age: 51 Year
  Sex: Male

DRUGS (2)
  1. RITALIN [Suspect]
     Active Substance: METHYLPHENIDATE HYDROCHLORIDE
     Indication: HYPERSOMNIA
     Dosage: 15 MG, DAILY
     Route: 065
     Dates: start: 20110131, end: 201303
  2. RITALIN [Suspect]
     Active Substance: METHYLPHENIDATE HYDROCHLORIDE
     Indication: SLEEP ATTACKS

REACTIONS (7)
  - Restless legs syndrome [Unknown]
  - Dysgraphia [Unknown]
  - Coordination abnormal [Unknown]
  - Sensory disturbance [Not Recovered/Not Resolved]
  - Muscular weakness [Unknown]
  - Cerebrovascular accident [Recovered/Resolved with Sequelae]
  - Paraesthesia [Unknown]

NARRATIVE: CASE EVENT DATE: 20111116
